FAERS Safety Report 5454990-9 (Version None)
Quarter: 2007Q3

REPORT INFORMATION
  Report Type: 
  Country: None (occurrence: None)
  Receive Date: 20070913
  Receipt Date: 20070903
  Transmission Date: 20080115
  Serious: Yes (Other)
  Sender: FDA-Public Use
  Company Number: 07H-020-0313154-00

PATIENT
  Age: 60 Year
  Sex: Female

DRUGS (9)
  1. BUPIVACAINE HCL [Suspect]
     Indication: LOCAL ANAESTHESIA
     Dosage: 4 ML, INJECTION
  2. LIDOCAINE [Suspect]
     Indication: LOCAL ANAESTHESIA
     Dosage: 2 ML, INJECTION
  3. D5W (GLUCOSE) [Concomitant]
  4. HYALURONIDASE [Concomitant]
  5. 70% ALCOHOL (ETHANOL) [Concomitant]
  6. DIAZEPAM [Concomitant]
  7. FENTANYL [Concomitant]
  8. PROPOFOL [Concomitant]
  9. ISOFLURANE [Concomitant]

REACTIONS (6)
  - AMNESIA [None]
  - ANAESTHETIC COMPLICATION NEUROLOGICAL [None]
  - APNOEA [None]
  - DRUG ADMINISTERED AT INAPPROPRIATE SITE [None]
  - LOSS OF CONSCIOUSNESS [None]
  - PSYCHOMOTOR HYPERACTIVITY [None]
